FAERS Safety Report 21409423 (Version 2)
Quarter: 2022Q4

REPORT INFORMATION
  Report Type: Spontaneous
  Country: DE (occurrence: DE)
  Receive Date: 20221004
  Receipt Date: 20221007
  Transmission Date: 20230113
  Serious: Yes (Hospitalization)
  Sender: FDA-Public Use
  Company Number: DE-ANIPHARMA-2022-DE-000169

PATIENT
  Age: 60 Year
  Sex: Male

DRUGS (10)
  1. CANDESARTAN CILEXETIL AND HYDROCHLOROTHIAZIDE [Suspect]
     Active Substance: CANDESARTAN CILEXETIL\HYDROCHLOROTHIAZIDE
     Indication: Product used for unknown indication
     Dosage: 32/25 MILLIGRAM, QD
     Route: 065
  2. ALLOPURINOL [Concomitant]
     Active Substance: ALLOPURINOL
     Dosage: 50 MG QD
     Route: 065
  3. PANTOPRAZOLE SODIUM [Suspect]
     Active Substance: PANTOPRAZOLE SODIUM
     Dosage: 20 MILLIGRAM
     Route: 065
  4. SPIRONOLACTONE [Suspect]
     Active Substance: SPIRONOLACTONE
     Dosage: 50 MILLIGRAM
     Route: 065
  5. IBUPROFEN [Concomitant]
     Active Substance: IBUPROFEN
     Dosage: 60 MILLIGRAM
     Route: 065
  6. ASPIRIN [Concomitant]
     Active Substance: ASPIRIN
     Dosage: 100 MG QD
     Route: 065
  7. TILIDINE [Concomitant]
     Active Substance: TILIDINE
     Route: 065
  8. VITAMIN D [Concomitant]
     Active Substance: VITAMIN D NOS
     Dosage: 20000 IU Q2WK
     Route: 065
  9. METOPROLOL [Concomitant]
     Active Substance: METOPROLOL
     Dosage: 47.5 MILLIGRAM
     Route: 065
  10. ATORVASTATIN\EZETIMIBE [Concomitant]
     Active Substance: ATORVASTATIN\EZETIMIBE
     Dosage: 10/80 MILLIGRAM, QD
     Route: 050

REACTIONS (8)
  - Electrocardiogram abnormal [Recovering/Resolving]
  - Anaemia [Recovering/Resolving]
  - Electrolyte imbalance [Recovering/Resolving]
  - Chest pain [Recovering/Resolving]
  - General physical health deterioration [Recovering/Resolving]
  - Renal impairment [Recovering/Resolving]
  - Hypotension [Recovering/Resolving]
  - Systemic infection [Recovering/Resolving]
